FAERS Safety Report 5778787-5 (Version None)
Quarter: 2008Q2

REPORT INFORMATION
  Report Type: 
  Country: None (occurrence: None)
  Receive Date: 20080619
  Receipt Date: 20080605
  Transmission Date: 20081010
  Serious: Yes (Death)
  Sender: FDA-Public Use
  Company Number: GXKR2008GB05122

PATIENT
  Age: 64 Year
  Sex: Male

DRUGS (5)
  1. RANITIDINE (NGX) [Interacting]
     Route: 065
  2. CLOZAPINE [Suspect]
     Indication: SCHIZOPHRENIA
     Dosage: UNK
     Route: 048
     Dates: start: 20010701, end: 20040817
  3. ZAPONEX [Suspect]
     Indication: SCHIZOPHRENIA
     Dosage: UNK
     Route: 065
     Dates: start: 20040818, end: 20060721
  4. SALBUTAMOL (NGX) [Interacting]
     Route: 065
  5. VALPROIC ACID [Concomitant]
     Route: 065

REACTIONS (3)
  - CARDIAC ARREST [None]
  - CIRCULATORY COLLAPSE [None]
  - DRUG INTERACTION [None]
